FAERS Safety Report 12401250 (Version 2)
Quarter: 2016Q3

REPORT INFORMATION
  Report Type: Spontaneous
  Country: JP (occurrence: JP)
  Receive Date: 20160525
  Receipt Date: 20160706
  Transmission Date: 20161109
  Serious: Yes (Other)
  Sender: FDA-Public Use
  Company Number: JP-GLAXOSMITHKLINE-JP2016JPN055122

PATIENT
  Age: 46 Year
  Sex: Female

DRUGS (7)
  1. LAMICTAL [Suspect]
     Active Substance: LAMOTRIGINE
     Dosage: 25 MG, BID
     Route: 048
     Dates: start: 20160404, end: 20160410
  2. PHENOBAL [Concomitant]
     Active Substance: PHENOBARBITAL
     Dosage: UNK
  3. PHENOBAL [Concomitant]
     Active Substance: PHENOBARBITAL
     Dosage: 100 MG, 1D
     Dates: start: 20140801
  4. CARBAMAZEPINE. [Concomitant]
     Active Substance: CARBAMAZEPINE
     Dosage: 300 UNK, UNK
  5. LAMICTAL [Suspect]
     Active Substance: LAMOTRIGINE
     Indication: EPILEPSY
     Dosage: 50 MG, QD
     Route: 048
     Dates: start: 20151201
  6. LAMICTAL [Suspect]
     Active Substance: LAMOTRIGINE
     Dosage: 100 MG, 1D
     Route: 048
     Dates: start: 20151218
  7. CARBAMAZEPINE. [Concomitant]
     Active Substance: CARBAMAZEPINE
     Dosage: 300 MG, 1D
     Dates: start: 20140801

REACTIONS (6)
  - Mania [Recovered/Resolved]
  - Insomnia [Recovering/Resolving]
  - Hypophagia [Unknown]
  - Haemorrhage subcutaneous [Recovered/Resolved]
  - Hyperkinesia [Unknown]
  - Screaming [Unknown]

NARRATIVE: CASE EVENT DATE: 2016
